FAERS Safety Report 5849608-7 (Version None)
Quarter: 2008Q3

REPORT INFORMATION
  Report Type: 
  Country: None (occurrence: None)
  Receive Date: 20080815
  Receipt Date: 20080806
  Transmission Date: 20090109
  Serious: Yes (Death)
  Sender: FDA-Public Use
  Company Number: GXKR2008JP04941

PATIENT
  Age: 73 Year
  Sex: Male

DRUGS (5)
  1. CARBOPLATIN [Suspect]
     Indication: LUNG ADENOCARCINOMA
     Dosage: 500 MG WITHIN 60 MIN. INFUSION
     Route: 042
     Dates: start: 20080508, end: 20080508
  2. TAXOL [Suspect]
     Indication: LUNG ADENOCARCINOMA
     Dosage: 100 MG WITHIN 45 MIN, INFUSION
     Dates: start: 20080508, end: 20080508
  3. DECADRON PHOSPHATE [Concomitant]
  4. FAMOTIDINE [Concomitant]
  5. SEROTONE             (AZASETRON HYDROCHLORIDE) INJECTION [Concomitant]

REACTIONS (6)
  - BLOOD PRESSURE INCREASED [None]
  - CARDIAC MASSAGE [None]
  - HEART RATE DECREASED [None]
  - RESPIRATORY DISORDER [None]
  - RESPIRATORY FAILURE [None]
  - SHOCK [None]
